FAERS Safety Report 23270808 (Version 3)
Quarter: 2023Q4

REPORT INFORMATION
  Report Type: Spontaneous
  Country: JP (occurrence: JP)
  Receive Date: 20231207
  Receipt Date: 20231227
  Transmission Date: 20240110
  Serious: Yes (Life-Threatening, Hospitalization, Other)
  Sender: FDA-Public Use
  Company Number: JP-SA-2023SA379437

PATIENT
  Age: 73 Year
  Sex: Male

DRUGS (2)
  1. OXALIPLATIN [Suspect]
     Active Substance: OXALIPLATIN
     Indication: Rectal cancer recurrent
     Dosage: UNK
  2. CAPECITABINE [Concomitant]
     Active Substance: CAPECITABINE
     Indication: Rectal cancer recurrent
     Dosage: UNK

REACTIONS (7)
  - Immune thrombocytopenia [Recovering/Resolving]
  - Petechiae [Recovering/Resolving]
  - Thrombocytopenia [Recovering/Resolving]
  - Haemorrhage [Recovering/Resolving]
  - Mouth haemorrhage [Recovering/Resolving]
  - Purpura [Recovering/Resolving]
  - Hepatic function abnormal [Unknown]
